FAERS Safety Report 5260736-X (Version None)
Quarter: 2007Q1

REPORT INFORMATION
  Report Type: 
  Country: None (occurrence: None)
  Receive Date: 20070309
  Receipt Date: 20070227
  Transmission Date: 20070707
  Serious: Yes (Death, Hospitalization)
  Sender: FDA-Public Use
  Company Number: FR-AMGEN-UK212843

PATIENT
  Age: 55 Year
  Sex: Female

DRUGS (3)
  1. NEULASTA [Suspect]
     Indication: CHEMOTHERAPY
     Route: 058
     Dates: start: 20040827, end: 20050415
  2. TAXOTERE [Suspect]
     Route: 042
     Dates: start: 20040827, end: 20050415
  3. FARMORUBICIN [Suspect]
     Route: 042
     Dates: start: 20040827, end: 20050415

REACTIONS (6)
  - ACUTE LEUKAEMIA [None]
  - GENERAL PHYSICAL HEALTH DETERIORATION [None]
  - HAEMATOMA [None]
  - PURPURA [None]
  - RENAL IMPAIRMENT [None]
  - RESPIRATORY DISORDER [None]
